FAERS Safety Report 6740114-4 (Version None)
Quarter: 2010Q2

REPORT INFORMATION
  Report Type: 
  Country: None (occurrence: None)
  Receive Date: 20100525
  Receipt Date: 20100519
  Transmission Date: 20101027
  Serious: Yes (Hospitalization)
  Sender: FDA-Public Use
  Company Number: US-RB-007648-10

PATIENT
  Sex: Male

DRUGS (2)
  1. SUBOXONE [Suspect]
     Indication: PAIN
     Route: 060
     Dates: start: 20090101, end: 20090101
  2. SUBOXONE [Suspect]
     Route: 060
     Dates: start: 20100101, end: 20100101

REACTIONS (8)
  - CONSTIPATION [None]
  - DEEP VEIN THROMBOSIS [None]
  - DYSURIA [None]
  - FEELING ABNORMAL [None]
  - FLATULENCE [None]
  - INTESTINAL OBSTRUCTION [None]
  - LIVER DISORDER [None]
  - RENAL DISORDER [None]
